FAERS Safety Report 6681667-4 (Version None)
Quarter: 2010Q2

REPORT INFORMATION
  Report Type: 
  Country: None (occurrence: None)
  Receive Date: 20100414
  Receipt Date: 20100402
  Transmission Date: 20101027
  Serious: Yes (Hospitalization)
  Sender: FDA-Public Use
  Company Number: JP-ELI_LILLY_AND_COMPANY-JP201004002554

PATIENT
  Age: 72 Year
  Sex: Female
  Weight: 58 kg

DRUGS (13)
  1. PEMETREXED [Suspect]
     Indication: LUNG ADENOCARCINOMA STAGE III
     Dosage: 750 MG, OTHER
     Route: 042
     Dates: start: 20090904, end: 20091104
  2. FOLIC ACID [Concomitant]
     Dosage: 0.5 MG, DAILY (1/D)
     Route: 048
     Dates: start: 20090828, end: 20091126
  3. HYDROXOCOBALAMIN ACETATE [Concomitant]
     Dosage: 1 MG, UNK
     Route: 030
     Dates: start: 20090828, end: 20091104
  4. PRIMPERAN /00041901/ [Concomitant]
     Route: 042
     Dates: start: 20090904, end: 20091104
  5. PRIMPERAN /00041901/ [Concomitant]
     Route: 048
     Dates: start: 20090907, end: 20091111
  6. IMIPENEM AND CILASTATIN [Concomitant]
     Indication: PNEUMONIA
     Route: 042
     Dates: end: 20090905
  7. MEDICON [Concomitant]
     Indication: LUNG ADENOCARCINOMA STAGE III
     Route: 048
  8. PURSENNID [Concomitant]
     Indication: CONSTIPATION
     Route: 048
  9. AMOBAN [Concomitant]
     Indication: INSOMNIA
     Route: 048
  10. DEXALTIN [Concomitant]
     Indication: STOMATITIS
     Dates: start: 20090909, end: 20090921
  11. CALONAL [Concomitant]
     Indication: CANCER PAIN
     Dates: start: 20090918, end: 20091212
  12. LOXONIN [Concomitant]
     Indication: CANCER PAIN
     Dates: start: 20090925, end: 20091212
  13. CYTOTEC [Concomitant]
     Indication: PROPHYLAXIS
     Route: 048
     Dates: start: 20090925, end: 20091212

REACTIONS (6)
  - BACTERIAL INFECTION [None]
  - DECREASED APPETITE [None]
  - DISEASE PROGRESSION [None]
  - DYSGEUSIA [None]
  - NAUSEA [None]
  - NON-SMALL CELL LUNG CANCER [None]
